FAERS Safety Report 5024576-9 (Version None)
Quarter: 2006Q2

REPORT INFORMATION
  Report Type: 
  Country: None (occurrence: None)
  Receive Date: 20060609
  Receipt Date: 20060609
  Transmission Date: 20061013
  Serious: Yes (Other)
  Sender: FDA-Public Use
  Company Number: None

PATIENT
  Age: 60 Year
  Sex: Female

DRUGS (5)
  1. ARTHROTEC [Suspect]
     Dates: start: 20050417, end: 20050717
  2. PREMARIN [Concomitant]
  3. SYNTHROID [Concomitant]
  4. LASIX [Concomitant]
  5. TUMS [Concomitant]

REACTIONS (3)
  - ABDOMINAL PAIN UPPER [None]
  - JAUNDICE [None]
  - PRURITUS [None]
